FAERS Safety Report 5582589-2 (Version None)
Quarter: 2008Q1

REPORT INFORMATION
  Report Type: 
  Country: None (occurrence: None)
  Receive Date: 20080107
  Receipt Date: 20080103
  Transmission Date: 20080703
  Serious: Yes (Other)
  Sender: FDA-Public Use
  Company Number: US-RB-008209-07

PATIENT
  Sex: Female

DRUGS (5)
  1. SUBUTEX [Suspect]
     Route: 060
     Dates: start: 20070523, end: 20071001
  2. SUBOXONE [Suspect]
     Route: 060
     Dates: start: 20050809
  3. SUBOXONE [Suspect]
     Route: 060
     Dates: end: 20070522
  4. SUBOXONE [Suspect]
     Route: 060
     Dates: start: 20071001
  5. PRENATAL VITAMINS [Concomitant]
     Indication: PREGNANCY
     Dosage: 1 TABLET DAILY
     Route: 048

REACTIONS (2)
  - DRUG EXPOSURE DURING PREGNANCY [None]
  - PREMATURE LABOUR [None]
